FAERS Safety Report 7530981-9 (Version None)
Quarter: 2011Q2

REPORT INFORMATION
  Report Type: 
  Country: None (occurrence: None)
  Receive Date: 20110608
  Receipt Date: 20090209
  Transmission Date: 20111010
  Serious: Yes (Other)
  Sender: FDA-Public Use
  Company Number: US-BAYER-200912401NA

PATIENT
  Age: 47 Year
  Sex: Female
  Weight: 48 kg

DRUGS (21)
  1. LASIX [Concomitant]
     Dosage: 80MG
     Route: 042
  2. TRAZODONE HCL [Concomitant]
     Dosage: 50 MG, QD
     Route: 048
  3. ALBUMIN (HUMAN) [Concomitant]
     Dosage: 250 CC
     Route: 042
  4. MAGNESIUM SULFATE [Concomitant]
     Dosage: 2 GRAM
     Route: 042
  5. LASIX [Concomitant]
     Dosage: 40MG THREE TO FOUR DAILY
     Route: 048
  6. ALDACTONE [Concomitant]
     Dosage: 25 MG, TID
     Route: 048
  7. PLASMA [Concomitant]
     Dosage: 4 U, ONCE
     Route: 042
     Dates: start: 20030917
  8. TRASYLOL [Suspect]
     Indication: TRICUSPID VALVE REPAIR
  9. DIGOXIN [Concomitant]
     Dosage: 0.125 MG, BID
     Route: 048
  10. DIFLUCAN [Concomitant]
     Dosage: 150 MG, QD
     Route: 048
  11. KEFLEX [Concomitant]
     Dosage: 3 G TOTAL
     Route: 042
  12. POTASSIUM CHLORIDE [Concomitant]
     Dosage: 20MEQ
     Route: 042
  13. TRASYLOL [Suspect]
     Indication: MITRAL VALVE REPLACEMENT
     Dosage: 1 ML INITIAL TEST DOSE
     Route: 042
     Dates: start: 20030917, end: 20030918
  14. VICODIN [Concomitant]
     Dosage: AS NEEDED
     Route: 048
  15. NEXIUM [Concomitant]
     Dosage: 40 MG, QD
     Route: 048
  16. RED BLOOD CELLS [Concomitant]
     Dosage: 5 U, ONCE
     Route: 042
     Dates: start: 20030917
  17. HEPARIN [Concomitant]
     Dosage: 55,000 UNITS
     Route: 042
  18. FENTANYL [Concomitant]
     Dosage: 2000 TOTAL
     Route: 042
  19. TRASYLOL [Suspect]
     Indication: AORTIC VALVE REPLACEMENT
     Dosage: 200 CC THEN 40 CC/ HOUR
     Route: 042
     Dates: start: 20030917, end: 20030918
  20. NITROGLYCERIN [Concomitant]
     Dosage: 0.5 +#8211; 1 MG/KG/MIN
     Route: 042
  21. CEFAZOLIN [Concomitant]
     Dosage: 1 GRAM
     Route: 042

REACTIONS (5)
  - INJURY [None]
  - UNEVALUABLE EVENT [None]
  - RENAL FAILURE [None]
  - RENAL FAILURE ACUTE [None]
  - PAIN [None]
